FAERS Safety Report 4728017-8 (Version None)
Quarter: 2005Q3

REPORT INFORMATION
  Report Type: 
  Country: None (occurrence: None)
  Receive Date: 20050725
  Receipt Date: 20050406
  Transmission Date: 20060218
  Serious: No
  Sender: FDA-Public Use
  Company Number: USA050495017

PATIENT
  Age: 31 Year
  Sex: Female
  Weight: 89 kg

DRUGS (5)
  1. STRATTERA [Suspect]
     Indication: ATTENTION DEFICIT/HYPERACTIVITY DISORDER
     Dosage: 18 MG DAY
     Dates: start: 20050330
  2. PAXIL [Concomitant]
  3. EFFEXOR [Concomitant]
  4. ALBUTEROL [Concomitant]
  5. SYNTHROID [Concomitant]

REACTIONS (3)
  - FEELING HOT [None]
  - MIDDLE INSOMNIA [None]
  - TOOTHACHE [None]
